FAERS Safety Report 11842947 (Version 1)
Quarter: 2015Q4

REPORT INFORMATION
  Report Type: Spontaneous
  Country: US (occurrence: US)
  Receive Date: 20151216
  Receipt Date: 20151216
  Transmission Date: 20160305
  Serious: No
  Sender: FDA-Public Use
  Company Number: US-PFIZER INC-2015427565

PATIENT
  Sex: Female

DRUGS (2)
  1. DETROL LA [Suspect]
     Active Substance: TOLTERODINE TARTRATE
     Dosage: UNK
  2. DETROL [Suspect]
     Active Substance: TOLTERODINE TARTRATE
     Dosage: UNK

REACTIONS (1)
  - Drug ineffective [Unknown]
